FAERS Safety Report 5087581-2 (Version None)
Quarter: 2006Q3

REPORT INFORMATION
  Report Type: 
  Country: None (occurrence: None)
  Receive Date: 20060822
  Receipt Date: 20060822
  Transmission Date: 20061208
  Serious: Yes (Hospitalization)
  Sender: FDA-Public Use
  Company Number: None

PATIENT
  Age: 53 Year
  Sex: Male

DRUGS (4)
  1. DIATRIZOATE MEGLUMINE [Suspect]
     Indication: SCAN WITH CONTRAST
     Dosage: ONCE    IT
     Dates: start: 20060220, end: 20060220
  2. BACLOFEN [Concomitant]
  3. FOSAMAX [Concomitant]
  4. TRAMADOL HCL [Concomitant]

REACTIONS (7)
  - CONVULSION [None]
  - DEPRESSED LEVEL OF CONSCIOUSNESS [None]
  - ENCEPHALOPATHY [None]
  - FEMUR FRACTURE [None]
  - HIP FRACTURE [None]
  - NEUROTOXICITY [None]
  - RESPIRATORY DISORDER [None]
